FAERS Safety Report 10756040 (Version 1)
Quarter: 2015Q1

REPORT INFORMATION
  Report Type: Spontaneous
  Country: US (occurrence: US)
  Receive Date: 20150202
  Receipt Date: 20150202
  Transmission Date: 20150721
  Serious: Yes (Death)
  Sender: FDA-Public Use
  Company Number: US-UNITED THERAPEUTICS-UNT-2015-000854

PATIENT
  Age: 48 Year
  Sex: Female
  Weight: 176.87 kg

DRUGS (1)
  1. TYVASO [Suspect]
     Active Substance: TREPROSTINIL
     Indication: COR PULMONALE CHRONIC
     Dosage: 18-54 MCG, QID
     Dates: start: 20110902

REACTIONS (1)
  - Death [Fatal]

NARRATIVE: CASE EVENT DATE: 20150123
